FAERS Safety Report 7875570-1 (Version None)
Quarter: 2011Q4

REPORT INFORMATION
  Report Type: 
  Country: None (occurrence: None)
  Receive Date: 20111031
  Receipt Date: 20111017
  Transmission Date: 20120403
  Serious: Yes (Other)
  Sender: FDA-Public Use
  Company Number: US-ELI_LILLY_AND_COMPANY-US201009004717

PATIENT
  Sex: Female
  Weight: 50.794 kg

DRUGS (11)
  1. ASCORBIC ACID [Concomitant]
     Dosage: 1200 MG, DAILY (1/D)
  2. ESTRADIOL [Concomitant]
     Dosage: 0.5 MG, DAILY (1/D)
  3. FISH OIL [Concomitant]
     Dosage: 1200 MG, DAILY (1/D)
  4. PREMARIN [Concomitant]
     Dosage: UNK, 2/W
     Route: 067
  5. STOOL SOFTENER [Concomitant]
     Dosage: UNK, 2/D
  6. TYLENOL (CAPLET) [Concomitant]
     Dosage: 650 MG, 2/D
  7. GELATIN [Concomitant]
     Dosage: UNK, 3/D
  8. FORTEO [Suspect]
     Indication: OSTEOPOROSIS
     Dosage: 20 UG, DAILY (1/D)
     Dates: start: 20100401
  9. MULTI-VITAMINS [Concomitant]
     Dosage: UNK, DAILY (1/D)
  10. CLONAZEPAM [Concomitant]
     Dosage: 0.05 MG, EACH EVENING
  11. CALCIUM WITH VITAMIN D [Concomitant]
     Dosage: 120 IU, 2/D

REACTIONS (5)
  - FATIGUE [None]
  - ASTHENIA [None]
  - CYSTOCELE [None]
  - BLADDER TRANSITIONAL CELL CARCINOMA STAGE I [None]
  - RECTOCELE [None]
